FAERS Safety Report 20918893 (Version 2)
Quarter: 2022Q2

REPORT INFORMATION
  Report Type: Spontaneous
  Country: JP (occurrence: JP)
  Receive Date: 20220606
  Receipt Date: 20220617
  Transmission Date: 20220721
  Serious: Yes (Other)
  Sender: FDA-Public Use
  Company Number: JP-KYOWAKIRIN-2022AKK008181

PATIENT
  Sex: Female

DRUGS (3)
  1. PEGFILGRASTIM [Suspect]
     Active Substance: PEGFILGRASTIM
     Indication: Product used for unknown indication
     Dosage: 3.6 MILLIGRAM
     Route: 058
  2. DEXAMETHASONE [Suspect]
     Active Substance: DEXAMETHASONE
     Indication: Product used for unknown indication
     Dosage: UNK
     Route: 042
  3. SODIUM CHLORIDE [Suspect]
     Active Substance: SODIUM CHLORIDE
     Indication: Product used for unknown indication
     Dosage: 100 MILLILITER
     Route: 042

REACTIONS (23)
  - Neuropathy peripheral [Unknown]
  - Back pain [Unknown]
  - Myalgia [Unknown]
  - Leukocytosis [Unknown]
  - Aspartate aminotransferase decreased [Unknown]
  - Alanine aminotransferase decreased [Unknown]
  - Abdominal pain lower [Unknown]
  - Anaemia [Unknown]
  - Lymphocyte count decreased [Unknown]
  - Stomatitis [Unknown]
  - Taste disorder [Unknown]
  - Vomiting [Unknown]
  - Constipation [Unknown]
  - Diarrhoea [Unknown]
  - Dermatitis [Unknown]
  - Insomnia [Unknown]
  - Hypoalbuminaemia [Unknown]
  - Nausea [Unknown]
  - Oedema [Unknown]
  - Pyrexia [Unknown]
  - Hypotension [Unknown]
  - Platelet count decreased [Unknown]
  - Platelet count decreased [Unknown]
